FAERS Safety Report 9562546 (Version 2)
Quarter: 2014Q1

REPORT INFORMATION
  Report Type: Spontaneous
  Country: US (occurrence: US)
  Receive Date: 20130927
  Receipt Date: 20140130
  Transmission Date: 20141002
  Serious: Yes (Hospitalization)
  Sender: FDA-Public Use
  Company Number: US-B.I. PHARMACEUTICALS,INC./RIDGEFIELD-2013-BI-30299BP

PATIENT
  Age: 74 Year
  Sex: Female
  Weight: 77.11 kg

DRUGS (10)
  1. PRADAXA [Suspect]
     Indication: ATRIAL FIBRILLATION
     Dosage: 300 MG
     Dates: start: 20110322, end: 20121220
  2. AMITRIPTYLINE [Concomitant]
     Dosage: 100 MG
  3. CARDIZEM [Concomitant]
     Dosage: 80 MG
     Route: 048
  4. LISINOPRIL [Concomitant]
     Dosage: 10 MG
     Route: 048
  5. LORTAB [Concomitant]
  6. METFORMIN [Concomitant]
     Dosage: 2000 MG
  7. POTASSIUM CHLORIDE [Concomitant]
  8. ZOLOFT [Concomitant]
     Dosage: 150 MG
     Route: 048
  9. ARICEPT [Concomitant]
     Dosage: 10 MG
     Route: 048
  10. LASIX [Concomitant]
     Dosage: 80 MG
     Route: 048

REACTIONS (4)
  - Lower gastrointestinal haemorrhage [Unknown]
  - Hypovolaemic shock [Unknown]
  - Haemorrhagic anaemia [Unknown]
  - Renal failure acute [Recovered/Resolved]
